FAERS Safety Report 5794278-X (Version None)
Quarter: 2008Q2

REPORT INFORMATION
  Report Type: 
  Country: None (occurrence: None)
  Receive Date: 20080627
  Receipt Date: 20080618
  Transmission Date: 20081010
  Serious: Yes (Hospitalization)
  Sender: FDA-Public Use
  Company Number: ES-ABBOTT-08P-144-0458254-00

PATIENT
  Age: 41 Year
  Sex: Female

DRUGS (6)
  1. KALETRA [Suspect]
     Indication: HIV WASTING SYNDROME
     Route: 048
     Dates: start: 20050101
  2. FELODIPINE [Interacting]
     Indication: RAYNAUD'S PHENOMENON
     Route: 048
     Dates: start: 20080108, end: 20080123
  3. OMEPRAZOLE [Concomitant]
     Indication: GASTROINTESTINAL PAIN
     Route: 065
  4. METHADON HCL TAB [Concomitant]
     Indication: DRUG ABUSE
     Route: 065
  5. LAMIVUDINE [Concomitant]
     Indication: HIV WASTING SYNDROME
     Route: 065
  6. TENOFOVIR DISOPROXIL FUMARATE [Concomitant]
     Indication: HIV WASTING SYNDROME

REACTIONS (2)
  - CARDIAC FAILURE CONGESTIVE [None]
  - DRUG INTERACTION [None]
